FAERS Safety Report 6408879-9 (Version None)
Quarter: 2009Q4

REPORT INFORMATION
  Report Type: 
  Country: None (occurrence: None)
  Receive Date: 20091009
  Receipt Date: 20090925
  Transmission Date: 20100525
  Serious: Yes (Hospitalization)
  Sender: FDA-Public Use
  Company Number: US-JNJFOC-20090706863

PATIENT
  Age: 61 Year
  Sex: Female

DRUGS (29)
  1. DECITABINE            (DECITABINE) LYOPHILIZED POWDER [Suspect]
     Indication: ACUTE MYELOID LEUKAEMIA
     Dosage: 35 MG, 1 IN 1 DAY, INTRAVENOUS : 27 MG, 1 IN 1 DAY, INTRAVENOUS
     Route: 042
     Dates: start: 20080811, end: 20080815
  2. VORINOSTAT (VORINOSTAT) CAPSULE [Suspect]
     Indication: ACUTE MYELOID LEUKAEMIA
     Dosage: 400 MG, 1 IN 1 DAY, ORAL
     Route: 048
     Dates: start: 20080816, end: 20080829
  3. VORINOSTAT (VORINOSTAT) CAPSULE [Suspect]
     Indication: ACUTE MYELOID LEUKAEMIA
     Dosage: 400 MG, 1 IN 1 DAY, ORAL
     Route: 048
     Dates: start: 20080920, end: 20081003
  4. VORINOSTAT (VORINOSTAT) CAPSULE [Suspect]
     Indication: ACUTE MYELOID LEUKAEMIA
     Dosage: 400 MG, 1 IN 1 DAY, ORAL
     Route: 048
     Dates: start: 20081018, end: 20081031
  5. VORINOSTAT (VORINOSTAT) CAPSULE [Suspect]
     Indication: ACUTE MYELOID LEUKAEMIA
     Dosage: 400 MG, 1 IN 1 DAY, ORAL
     Route: 048
     Dates: start: 20081115, end: 20081128
  6. VORINOSTAT (VORINOSTAT) CAPSULE [Suspect]
     Indication: ACUTE MYELOID LEUKAEMIA
     Dosage: 400 MG, 1 IN 1 DAY, ORAL
     Route: 048
     Dates: start: 20081220, end: 20090102
  7. VORINOSTAT (VORINOSTAT) CAPSULE [Suspect]
     Indication: ACUTE MYELOID LEUKAEMIA
     Dosage: 400 MG, 1 IN 1 DAY, ORAL
     Route: 048
     Dates: start: 20090131, end: 20090210
  8. VORINOSTAT (VORINOSTAT) CAPSULE [Suspect]
     Indication: ACUTE MYELOID LEUKAEMIA
     Dosage: 400 MG, 1 IN 1 DAY, ORAL
     Route: 048
     Dates: start: 20090307, end: 20090314
  9. VORINOSTAT (VORINOSTAT) CAPSULE [Suspect]
     Indication: ACUTE MYELOID LEUKAEMIA
     Dosage: 400 MG, 1 IN 1 DAY, ORAL
     Route: 048
     Dates: start: 20090411, end: 20090420
  10. TYLENOL (CAPLET) [Concomitant]
  11. DILTIAZEM HCL [Concomitant]
  12. ATENOLOL [Concomitant]
  13. ANZEMET [Concomitant]
  14. ATEROL (SULODEXIDE) [Concomitant]
  15. BENADRYL [Concomitant]
  16. RED BLOOD CELLS [Concomitant]
  17. NEUPOGEN [Concomitant]
  18. PLATELET CONCENTRATE (PLATELETS, CONCENTRATED) [Concomitant]
  19. NEULASTA [Concomitant]
  20. ACYCLOVIR [Concomitant]
  21. UNSPECIFIED MOUTHWASH (STOMATOLOGICALS, MOUTH PREPARATIONS) [Concomitant]
  22. GENTAMICIN [Concomitant]
  23. VANCOMYCIN [Concomitant]
  24. FLAGYL [Concomitant]
  25. LEVAQUIN [Concomitant]
  26. POTASSIUM CHLORIDE [Concomitant]
  27. ERYTHROMYCIN OPHTHALMIC OINTMENT (ERYTHROMYCIN) [Concomitant]
  28. ULTRAM [Concomitant]
  29. LIPITOR [Concomitant]

REACTIONS (6)
  - CELLULITIS ORBITAL [None]
  - FEBRILE NEUTROPENIA [None]
  - PALMAR-PLANTAR ERYTHRODYSAESTHESIA SYNDROME [None]
  - PNEUMONIA PRIMARY ATYPICAL [None]
  - THROMBOCYTOPENIA [None]
  - VENTRICULAR EXTRASYSTOLES [None]
